FAERS Safety Report 17981653 (Version 1)
Quarter: 2020Q3

REPORT INFORMATION
  Report Type: Spontaneous
  Country: FR (occurrence: FR)
  Receive Date: 20200706
  Receipt Date: 20200706
  Transmission Date: 20201103
  Serious: Yes (Hospitalization, Other)
  Sender: FDA-Public Use
  Company Number: FR-AUROBINDO-AUR-APL-2020-031725

PATIENT
  Age: 65 Year
  Sex: Female

DRUGS (3)
  1. CEFAZOLINE [Suspect]
     Active Substance: CEFAZOLIN SODIUM
     Indication: SEPSIS
     Dosage: 2 GRAM, ONCE A DAY
     Route: 042
     Dates: start: 20200530, end: 20200610
  2. DALACINE [Suspect]
     Active Substance: CLINDAMYCIN
     Indication: SEPSIS
     Dosage: UNK (NR)
     Route: 048
     Dates: start: 20200530, end: 20200610
  3. MEROPENEM ARROW 1000 MG POWDER FOR SOLUTION FOR INJECION OR INFUSION [Suspect]
     Active Substance: MEROPENEM
     Indication: SEPSIS
     Dosage: 2 GRAM, ONCE A DAY
     Route: 042
     Dates: start: 20200608, end: 20200610

REACTIONS (1)
  - Acute generalised exanthematous pustulosis [Recovering/Resolving]

NARRATIVE: CASE EVENT DATE: 20200610
